FAERS Safety Report 19613933 (Version 3)
Quarter: 2021Q3

REPORT INFORMATION
  Report Type: Spontaneous
  Country: GB (occurrence: GB)
  Receive Date: 20210727
  Receipt Date: 20210902
  Transmission Date: 20211014
  Serious: Yes (Disabling, Other)
  Sender: FDA-Public Use
  Company Number: GB-MYLANLABS-2021M1045551

PATIENT
  Age: 43 Year
  Sex: Female
  Weight: 45.81 kg

DRUGS (2)
  1. PROBIOTIC                          /06395501/ [Concomitant]
     Active Substance: BIFIDOBACTERIUM ANIMALIS LACTIS
     Dosage: UNK
  2. OMEPRAZOLE. [Suspect]
     Active Substance: OMEPRAZOLE
     Indication: ABDOMINAL PAIN UPPER
     Dosage: 1 DOSAGE FORM, QD
     Route: 048
     Dates: start: 202009, end: 202011

REACTIONS (9)
  - Hiatus hernia [Unknown]
  - Insomnia [Unknown]
  - Nausea [Unknown]
  - Eating disorder symptom [Unknown]
  - Suicidal ideation [Recovered/Resolved with Sequelae]
  - Diarrhoea [Recovered/Resolved with Sequelae]
  - Duodenitis [Unknown]
  - Weight decreased [Unknown]
  - Anxiety [Unknown]

NARRATIVE: CASE EVENT DATE: 202009
